FAERS Safety Report 15202833 (Version 2)
Quarter: 2018Q4

REPORT INFORMATION
  Report Type: Spontaneous
  Country: DE (occurrence: DE)
  Receive Date: 20180726
  Receipt Date: 20181010
  Transmission Date: 20190204
  Serious: Yes (Other)
  Sender: FDA-Public Use
  Company Number: DE-TEVA-2018-DE-930177

PATIENT
  Age: 30 Year
  Sex: Female

DRUGS (2)
  1. TACROLIMUS. [Suspect]
     Active Substance: TACROLIMUS
     Indication: RENAL TRANSPLANT
     Route: 065
  2. EISENCARBOXYMALTOSE [Suspect]
     Active Substance: IRON POLYMALTOSE
     Indication: MENORRHAGIA
     Route: 041

REACTIONS (4)
  - Drug effect decreased [Unknown]
  - Transplant rejection [Unknown]
  - Tubulointerstitial nephritis [Unknown]
  - Drug interaction [Unknown]
